FAERS Safety Report 5338338-6 (Version None)
Quarter: 2007Q2

REPORT INFORMATION
  Report Type: 
  Country: None (occurrence: None)
  Receive Date: 20070530
  Receipt Date: 20070517
  Transmission Date: 20071010
  Serious: Yes (Hospitalization, Other)
  Sender: FDA-Public Use
  Company Number: US-ELI_LILLY_AND_COMPANY-US200701005673

PATIENT
  Age: 82 Year
  Sex: Female

DRUGS (5)
  1. FORTEO [Suspect]
     Indication: OSTEOPOROSIS
     Dosage: 20 UG, DAILY (1/D)
     Dates: start: 20050425
  2. ADVAIR DISKUS 100/50 [Concomitant]
  3. ALBUTEROL [Concomitant]
     Dosage: UNK, AS NEEDED
  4. VIACTIV /USA/ [Concomitant]
     Dosage: UNK, 2/D
  5. VITAMIN B12 NOS [Concomitant]
     Dosage: 100 UG, UNK

REACTIONS (2)
  - FALL [None]
  - HIP FRACTURE [None]
